FAERS Safety Report 17026879 (Version 1)
Quarter: 2019Q4

REPORT INFORMATION
  Report Type: Report from Study
  Country: US (occurrence: US)
  Receive Date: 20191113
  Receipt Date: 20191113
  Transmission Date: 20200122
  Serious: Yes (Death)
  Sender: FDA-Public Use
  Company Number: US-ASTRAZENECA-2019SF60799

PATIENT
  Age: 27725 Day
  Sex: Female

DRUGS (17)
  1. CENTRUM [Concomitant]
     Active Substance: VITAMINS
  2. FISH OIL [Concomitant]
     Active Substance: FISH OIL
  3. ESTRADIOL. [Concomitant]
     Active Substance: ESTRADIOL
  4. VENTOLIN [Concomitant]
     Active Substance: ALBUTEROL SULFATE
  5. NYSTATIN. [Concomitant]
     Active Substance: NYSTATIN
  6. CARAFATE [Concomitant]
     Active Substance: SUCRALFATE
  7. VITAMIN C [Concomitant]
     Active Substance: ASCORBIC ACID
  8. ONDANSETRON [Concomitant]
     Active Substance: ONDANSETRON
  9. VITAMIN B COMPLEX [Concomitant]
     Active Substance: CYANOCOBALAMIN\DEXPANTHENOL\NIACINAMIDE\PYRIDOXINE HYDROCHLORIDE\RIBOFLAVIN 5^-PHOSPHATE SODIUM\THIAMINE HYDROCHLORIDE\VITAMIN B COMPLEX
  10. ALBUTEROL. [Concomitant]
     Active Substance: ALBUTEROL
  11. LANTUS [Concomitant]
     Active Substance: INSULIN GLARGINE
  12. CLARITIN [Concomitant]
     Active Substance: LORATADINE
  13. TAGRISSO [Suspect]
     Active Substance: OSIMERTINIB
     Indication: NON-SMALL CELL LUNG CANCER
     Route: 048
     Dates: start: 20190822
  14. VITAMIN B-6 [Concomitant]
     Active Substance: PYRIDOXINE
  15. VITAMIN D3 [Concomitant]
     Active Substance: CHOLECALCIFEROL
  16. BENZONATATE. [Concomitant]
     Active Substance: BENZONATATE
  17. PREDNISONE. [Concomitant]
     Active Substance: PREDNISONE

REACTIONS (1)
  - Death [Fatal]

NARRATIVE: CASE EVENT DATE: 20191107
